FAERS Safety Report 8841109 (Version 1)
Quarter: 2012Q4

REPORT INFORMATION
  Report Type: 
  Country: US (occurrence: US)
  Receive Date: 20121015
  Receipt Date: 20121015
  Transmission Date: 20130627
  Serious: Yes (Hospitalization)
  Sender: FDA-Public Use
  Company Number: US-ELI_LILLY_AND_COMPANY-US201208008019

PATIENT
  Age: 55 Year
  Sex: Male
  Weight: 126.98 kg

DRUGS (1)
  1. CYMBALTA [Suspect]
     Indication: BACK PAIN
     Dosage: 30 mg, qd
     Dates: start: 20120823, end: 20120824

REACTIONS (6)
  - Pyrexia [Unknown]
  - Malaise [Unknown]
  - Vomiting [Unknown]
  - Chills [Unknown]
  - Musculoskeletal stiffness [Unknown]
  - Gastrointestinal disorder [Unknown]
